FAERS Safety Report 9007775 (Version 1)
Quarter: 2013Q1

REPORT INFORMATION
  Report Type: Spontaneous
  Country: US (occurrence: US)
  Receive Date: 20130111
  Receipt Date: 20130111
  Transmission Date: 20140127
  Serious: Yes (Other)
  Sender: FDA-Public Use
  Company Number: US-009507513-0907USA03775

PATIENT
  Age: 22 Year
  Sex: Female
  Weight: 65.77 kg

DRUGS (2)
  1. SINGULAIR [Suspect]
     Indication: MULTIPLE ALLERGIES
     Dosage: 10 MG, QD
     Route: 048
     Dates: start: 20040715, end: 20080815
  2. SINGULAIR [Suspect]
     Indication: ASTHMA

REACTIONS (7)
  - Fear [Recovered/Resolved]
  - Mood swings [Recovered/Resolved]
  - Night sweats [Recovered/Resolved]
  - Panic attack [Recovered/Resolved]
  - Sleep terror [Recovered/Resolved]
  - Anxiety [Recovered/Resolved]
  - Depression [Recovered/Resolved]
